FAERS Safety Report 5318677-5 (Version None)
Quarter: 2007Q2

REPORT INFORMATION
  Report Type: 
  Country: None (occurrence: None)
  Receive Date: 20070508
  Receipt Date: 20070502
  Transmission Date: 20071010
  Serious: Yes (Death)
  Sender: FDA-Public Use
  Company Number: FR-SANOFI-SYNTHELABO-F01200700569

PATIENT
  Sex: Male
  Weight: 72 kg

DRUGS (6)
  1. ZOFRAN [Concomitant]
     Dates: start: 20060518, end: 20060523
  2. ATROPINE [Concomitant]
     Dates: start: 20060518, end: 20060518
  3. FLUOROURACIL [Suspect]
     Dosage: 730 MG BOLUS FOLLOWED BY 4400 MG INFUSION
     Route: 041
     Dates: start: 20060518, end: 20060519
  4. LEUCOVORIN CALCIUM [Suspect]
     Dosage: 730 MG
     Route: 041
     Dates: start: 20060518, end: 20060518
  5. IRINOTECAN HCL [Suspect]
     Dosage: 330 MG
     Route: 041
     Dates: start: 20060518, end: 20060518
  6. OXALIPLATIN [Suspect]
     Indication: PANCREATIC CARCINOMA METASTATIC
     Dosage: 150 MG
     Route: 041
     Dates: start: 20060518, end: 20060518

REACTIONS (1)
  - DEATH [None]
